FAERS Safety Report 4351085-2 (Version None)
Quarter: 2004Q2

REPORT INFORMATION
  Report Type: 
  Country: None (occurrence: None)
  Receive Date: 20040428
  Receipt Date: 20031125
  Transmission Date: 20050107
  Serious: Yes (Hospitalization)
  Sender: FDA-Public Use
  Company Number: US-JNJFOC-20030704412

PATIENT
  Age: 36 Year
  Sex: Female
  Weight: 53.5244 kg

DRUGS (4)
  1. ULTRAM [Suspect]
     Indication: GASTRITIS
     Dosage: 50 MG, 6 IN 1 DAY, ORAL
     Route: 048
     Dates: start: 20020601, end: 20030701
  2. ULTRAM [Suspect]
     Indication: MIGRAINE
     Dosage: 50 MG, 6 IN 1 DAY, ORAL
     Route: 048
     Dates: start: 20020601, end: 20030701
  3. TOPAMAX [Concomitant]
  4. WINE 4 TO 6 DRINKS DAILY (ETHANOL) [Concomitant]

REACTIONS (2)
  - DRUG DEPENDENCE [None]
  - DRUG WITHDRAWAL SYNDROME [None]
